FAERS Safety Report 8112290-2 (Version None)
Quarter: 2012Q1

REPORT INFORMATION
  Report Type: 
  Country: None (occurrence: None)
  Receive Date: 20120203
  Receipt Date: 20120203
  Transmission Date: 20120608
  Serious: Yes (Hospitalization)
  Sender: FDA-Public Use
  Company Number: None

PATIENT
  Sex: Female
  Weight: 54.4 kg

DRUGS (2)
  1. TAXOL [Suspect]
     Indication: BREAST CANCER
  2. HERCEPTIN [Concomitant]
     Indication: BREAST CANCER

REACTIONS (1)
  - PANCREATITIS ACUTE [None]
